FAERS Safety Report 6471088-1 (Version None)
Quarter: 2009Q4

REPORT INFORMATION
  Report Type: 
  Country: None (occurrence: None)
  Receive Date: 20091203
  Receipt Date: 20091124
  Transmission Date: 20100525
  Serious: Yes (Hospitalization, Other)
  Sender: FDA-Public Use
  Company Number: PHHY2009MX44630

PATIENT
  Age: 93 Year
  Sex: Female

DRUGS (5)
  1. DIOVAN [Suspect]
     Indication: HYPERTENSION
     Dosage: 1.5 TABLET (160 MG) PER DAY
     Dates: start: 20080201
  2. DIOVAN [Suspect]
     Dosage: 0.5 TABLET (160 MG) PER DAY
     Dates: start: 20090803
  3. PLAVIX [Concomitant]
  4. ESPIRONOLACTONA [Concomitant]
  5. METOPROLOL [Concomitant]
     Indication: TACHYCARDIA
     Dosage: UNK
     Dates: start: 20090801

REACTIONS (7)
  - BLINDNESS [None]
  - FALL [None]
  - GAIT DISTURBANCE [None]
  - HIP FRACTURE [None]
  - HYPOTENSION [None]
  - PROSTHESIS IMPLANTATION [None]
  - SURGERY [None]
